FAERS Safety Report 9396043 (Version 3)
Quarter: 2013Q4

REPORT INFORMATION
  Report Type: Spontaneous
  Country: NO (occurrence: None)
  Receive Date: 20130708
  Receipt Date: 20131002
  Transmission Date: 20140711
  Serious: Yes (Hospitalization)
  Sender: FDA-Public Use
  Company Number: AUR-APL-2013-05667

PATIENT
  Age: 53 Year
  Sex: Male

DRUGS (2)
  1. SIMVASTATIN [Suspect]
     Indication: CAROTID ARTERIOSCLEROSIS
     Dosage: 20 MG (20 MG, 1 IN 1 D), ORAL
     Route: 048
     Dates: end: 20130615
  2. ALBYL-E (ALBYL-ENTEROSOLUBILE) [Concomitant]

REACTIONS (8)
  - Myalgia [None]
  - Arthralgia [None]
  - Musculoskeletal pain [None]
  - Pain in extremity [None]
  - Influenza like illness [None]
  - White blood cell count decreased [None]
  - Platelet count decreased [None]
  - Arthralgia [None]
